FAERS Safety Report 4335605-X (Version None)
Quarter: 2004Q2

REPORT INFORMATION
  Report Type: 
  Country: None (occurrence: None)
  Receive Date: 20040409
  Receipt Date: 20030407
  Transmission Date: 20050107
  Serious: Yes (Hospitalization, Other)
  Sender: FDA-Public Use
  Company Number: US-MERCK-0304USA00840

PATIENT
  Age: 60 Year
  Sex: Female
  Weight: 77 kg

DRUGS (3)
  1. [THERAPY UNSPECIFIED] [Concomitant]
     Route: 065
  2. INSULIN [Concomitant]
     Route: 065
  3. VIOXX [Suspect]
     Indication: SPONDYLITIS
     Route: 048
     Dates: start: 20000401, end: 20000601

REACTIONS (60)
  - ABDOMINAL DISTENSION [None]
  - ABDOMINAL PAIN [None]
  - AGITATION [None]
  - ANGINA PECTORIS [None]
  - ANGINA UNSTABLE [None]
  - ANOXIC ENCEPHALOPATHY [None]
  - ANXIETY [None]
  - ASCITES [None]
  - ATRIOVENTRICULAR BLOCK COMPLETE [None]
  - BLINDNESS [None]
  - BLOOD ALBUMIN INCREASED [None]
  - BLOOD PRESSURE INCREASED [None]
  - CARDIAC ANEURYSM [None]
  - CARDIAC FAILURE CONGESTIVE [None]
  - CARDIAC MURMUR [None]
  - CARDIOGENIC SHOCK [None]
  - CAROTID ARTERY OCCLUSION [None]
  - CAROTID ARTERY STENOSIS [None]
  - CEREBROVASCULAR ACCIDENT [None]
  - COLITIS ISCHAEMIC [None]
  - COMA [None]
  - CONSTIPATION [None]
  - CONTUSION [None]
  - CORONARY ARTERY DISEASE [None]
  - COUGH [None]
  - DEHYDRATION [None]
  - DEPRESSED LEVEL OF CONSCIOUSNESS [None]
  - DIABETES MELLITUS INSULIN-DEPENDENT [None]
  - DIABETIC RETINOPATHY [None]
  - DIARRHOEA [None]
  - ESCHERICHIA INFECTION [None]
  - FALL [None]
  - GASTRITIS [None]
  - HAEMATOMA [None]
  - HAEMORRHOIDAL HAEMORRHAGE [None]
  - HAEMORRHOIDS [None]
  - HEART SOUNDS ABNORMAL [None]
  - HEPATIC CIRRHOSIS [None]
  - HEPATIC FAILURE [None]
  - HYPERGLYCAEMIA [None]
  - INJURY [None]
  - ISCHAEMIC CARDIOMYOPATHY [None]
  - MITRAL VALVE INCOMPETENCE [None]
  - MUSCLE TIGHTNESS [None]
  - MYOCARDIAL INFARCTION [None]
  - PAIN IN EXTREMITY [None]
  - PRODUCTIVE COUGH [None]
  - PRURITUS [None]
  - PULMONARY HYPERTENSION [None]
  - PULMONARY OEDEMA [None]
  - RASH [None]
  - RENAL CYST [None]
  - RENAL FAILURE ACUTE [None]
  - SICK SINUS SYNDROME [None]
  - SILENT MYOCARDIAL INFARCTION [None]
  - SPINAL OSTEOARTHRITIS [None]
  - TENDONITIS [None]
  - TRICUSPID VALVE INCOMPETENCE [None]
  - URINARY TRACT INFECTION [None]
  - WEIGHT DECREASED [None]
